FAERS Safety Report 4640412-4 (Version None)
Quarter: 2005Q2

REPORT INFORMATION
  Report Type: 
  Country: None (occurrence: None)
  Receive Date: 20050419
  Receipt Date: 20050330
  Transmission Date: 20051028
  Serious: Yes (Other)
  Sender: FDA-Public Use
  Company Number: 2005057800

PATIENT
  Age: 53 Year
  Sex: Female

DRUGS (1)
  1. VALDECOXIB [Suspect]
     Indication: OSTEOARTHRITIS
     Dosage: 20 MG
     Dates: start: 20021001, end: 20020101

REACTIONS (2)
  - DRUG HYPERSENSITIVITY [None]
  - STEVENS-JOHNSON SYNDROME [None]
